FAERS Safety Report 5304858-3 (Version None)
Quarter: 2007Q2

REPORT INFORMATION
  Report Type: 
  Country: None (occurrence: None)
  Receive Date: 20070423
  Receipt Date: 20070315
  Transmission Date: 20071010
  Serious: Yes (Hospitalization)
  Sender: FDA-Public Use
  Company Number: BR-PFIZER INC-2007011987

PATIENT
  Sex: Female

DRUGS (5)
  1. LIPITOR [Suspect]
     Indication: HYPERCHOLESTEROLAEMIA
     Route: 048
  2. SOMALGIN [Concomitant]
     Route: 048
  3. ATENOLOL [Concomitant]
     Route: 048
     Dates: start: 20020101
  4. SUSTRATE [Concomitant]
     Route: 048
     Dates: start: 20020101
  5. SOMALGIN [Concomitant]
     Route: 048

REACTIONS (2)
  - CORONARY ARTERIAL STENT INSERTION [None]
  - CORONARY ARTERY OCCLUSION [None]
